FAERS Safety Report 6719553-3 (Version None)
Quarter: 2010Q2

REPORT INFORMATION
  Report Type: 
  Country: None (occurrence: None)
  Receive Date: 20100510
  Receipt Date: 20100510
  Transmission Date: 20101027
  Serious: Yes (Hospitalization, Disabling)
  Sender: FDA-Public Use
  Company Number: None

PATIENT
  Age: 53 Year
  Sex: Female
  Weight: 63.5036 kg

DRUGS (2)
  1. FOSAMAX [Suspect]
     Indication: OSTEOPOROSIS
     Dosage: 70MG WEEKLY PO
     Route: 048
     Dates: start: 19960918, end: 20040915
  2. BONIVA [Suspect]
     Dosage: 150MG MONTHLY PO
     Route: 048
     Dates: start: 20060301, end: 20080703

REACTIONS (6)
  - FEMUR FRACTURE [None]
  - GASTRIC DISORDER [None]
  - HAEMORRHAGE [None]
  - LIMB INJURY [None]
  - PAIN IN EXTREMITY [None]
  - PATHOLOGICAL FRACTURE [None]
